FAERS Safety Report 14166811 (Version 1)
Quarter: 2017Q4

REPORT INFORMATION
  Report Type: Spontaneous
  Country: US (occurrence: US)
  Receive Date: 20171107
  Receipt Date: 20171107
  Transmission Date: 20180321
  Serious: No
  Sender: FDA-Public Use
  Company Number: US-BAYER-2017-214590

PATIENT
  Sex: Female

DRUGS (4)
  1. ALEVE [Suspect]
     Active Substance: NAPROXEN SODIUM
     Indication: PAIN
     Route: 048
     Dates: end: 20171106
  2. ALEVE [Suspect]
     Active Substance: NAPROXEN SODIUM
     Indication: PAIN
     Route: 048
     Dates: end: 20171106
  3. ALEVE [Suspect]
     Active Substance: NAPROXEN SODIUM
     Indication: INFLAMMATION
  4. ALEVE [Suspect]
     Active Substance: NAPROXEN SODIUM
     Dosage: (TOOK 8 IN 30 MINUTES)
     Route: 048
     Dates: start: 20171106

REACTIONS (6)
  - Off label use [Unknown]
  - Product use in unapproved indication [Unknown]
  - Abdominal pain upper [Recovered/Resolved]
  - Off label use [Unknown]
  - Drug administration error [None]
  - Product use issue [Unknown]

NARRATIVE: CASE EVENT DATE: 20171106
